FAERS Safety Report 6384159-5 (Version None)
Quarter: 2009Q4

REPORT INFORMATION
  Report Type: 
  Country: None (occurrence: None)
  Receive Date: 20091001
  Receipt Date: 20090929
  Transmission Date: 20100525
  Serious: Yes (Death, Hospitalization)
  Sender: FDA-Public Use
  Company Number: US-BAYER-200928273NA

PATIENT
  Age: 58 Year
  Sex: Male
  Weight: 134 kg

DRUGS (12)
  1. SORAFENIB [Suspect]
     Indication: HEPATIC NEOPLASM MALIGNANT NON-RESECTABLE
     Dosage: TOTAL DAILY DOSE: 800 MG  UNIT DOSE: 200 MG
     Route: 048
     Dates: start: 20090723, end: 20090727
  2. CISPLATIN [Suspect]
     Indication: HEPATIC NEOPLASM MALIGNANT NON-RESECTABLE
     Dosage: TOTAL DAILY DOSE: 300 MG  UNIT DOSE: 125 MG/M2
     Route: 013
     Dates: start: 20090722, end: 20090722
  3. HYDROCODONE [Concomitant]
     Dosage: TOTAL DAILY DOSE: 2250 MG
  4. LIPITOR [Concomitant]
     Dosage: TOTAL DAILY DOSE: 20 MG
  5. GABAPENTIN [Concomitant]
     Dosage: TOTAL DAILY DOSE: 600 MG
  6. HYZAAR [Concomitant]
  7. TAZTIA XT [Concomitant]
     Dosage: TOTAL DAILY DOSE: 360 MG
  8. ENALAPRIL MALEATE [Concomitant]
     Dosage: TOTAL DAILY DOSE: 10 MG
  9. NAPROXEN [Concomitant]
     Dosage: TOTAL DAILY DOSE: 500 MG
  10. LASIX [Concomitant]
     Dosage: TOTAL DAILY DOSE: 40 MG
  11. ASPIRIN [Concomitant]
     Dosage: TOTAL DAILY DOSE: 325 MG
  12. HUMALOG [Concomitant]
     Dosage: AS USED: 200/25 U

REACTIONS (4)
  - GASTROINTESTINAL HAEMORRHAGE [None]
  - HEPATIC NEOPLASM MALIGNANT NON-RESECTABLE [None]
  - MENTAL STATUS CHANGES [None]
  - RENAL FAILURE [None]
